FAERS Safety Report 10304701 (Version 2)
Quarter: 2014Q3

REPORT INFORMATION
  Report Type: Spontaneous
  Country: CH (occurrence: None)
  Receive Date: 20140710
  Receipt Date: 20140915
  Transmission Date: 20150326
  Serious: Yes (Other)
  Sender: FDA-Public Use
  Company Number: 20140396

PATIENT
  Age: 54 Year
  Sex: Female

DRUGS (5)
  1. FERINJECT [Suspect]
     Active Substance: FERRIC CARBOXYMALTOSE
     Indication: ANAEMIA
     Route: 041
     Dates: start: 20140530, end: 20140530
  2. CALCIGRAM FORTE ( COLECALCIFEROL, CALCIUM, COMBINATIONS WITH VITAMIN D AND OTHER DRUGS) [Concomitant]
  3. PENTASA ( MESALAZINE) [Concomitant]
  4. PREDNISOLONE. [Concomitant]
     Active Substance: PREDNISOLONE
  5. LANSOPRAZOLE. [Concomitant]
     Active Substance: LANSOPRAZOLE

REACTIONS (3)
  - Pyrexia [None]
  - Pharyngeal oedema [None]
  - Fatigue [None]

NARRATIVE: CASE EVENT DATE: 2014
